FAERS Safety Report 23269256 (Version 1)
Quarter: 2023Q4

REPORT INFORMATION
  Report Type: Report from Study
  Country: NI (occurrence: NI)
  Receive Date: 20231207
  Receipt Date: 20231207
  Transmission Date: 20240110
  Serious: Yes (Death)
  Sender: FDA-Public Use
  Company Number: NI-Merck Healthcare KGaA-2023492138

PATIENT
  Sex: Male

DRUGS (1)
  1. SAIZEN [Suspect]
     Active Substance: SOMATROPIN
     Indication: Product used for unknown indication
     Route: 058
     Dates: start: 20230726

REACTIONS (2)
  - Septic shock [Fatal]
  - Pneumonia [Fatal]
